FAERS Safety Report 8653942 (Version 4)
Quarter: 2013Q1

REPORT INFORMATION
  Report Type: Spontaneous
  Country: BR (occurrence: BR)
  Receive Date: 20120709
  Receipt Date: 20130211
  Transmission Date: 20140127
  Serious: Yes (Other)
  Sender: FDA-Public Use
  Company Number: BR-JNJFOC-20120700566

PATIENT
  Sex: Male
  Weight: 64.4 kg

DRUGS (13)
  1. REMICADE [Suspect]
     Indication: CROHN^S DISEASE
     Route: 042
     Dates: start: 201203
  2. REMICADE [Suspect]
     Indication: CROHN^S DISEASE
     Dosage: 2ND INFUSION
     Route: 042
     Dates: start: 201201
  3. REMICADE [Suspect]
     Indication: CROHN^S DISEASE
     Dosage: 1ST INFUSION
     Route: 042
     Dates: start: 201111
  4. REMICADE [Suspect]
     Indication: PROCTOCOLITIS
     Route: 042
     Dates: start: 201203
  5. REMICADE [Suspect]
     Indication: PROCTOCOLITIS
     Dosage: 2ND INFUSION
     Route: 042
     Dates: start: 201201
  6. REMICADE [Suspect]
     Indication: PROCTOCOLITIS
     Dosage: 1ST INFUSION
     Route: 042
     Dates: start: 201111
  7. PREDNISONE [Concomitant]
     Indication: NEOPLASM PROPHYLAXIS
     Route: 065
  8. PREDNISONE [Concomitant]
     Indication: NEOPLASM PROPHYLAXIS
     Dosage: 15MG ON ONE DAY AND 20 MG ON THE OTHER DAY
     Route: 065
     Dates: start: 1996
  9. PREDNISONE [Concomitant]
     Indication: PROCTOCOLITIS
     Dosage: 15MG ON ONE DAY AND 20 MG ON THE OTHER DAY
     Route: 065
     Dates: start: 1996
  10. PREDNISONE [Concomitant]
     Indication: PROCTOCOLITIS
     Route: 065
  11. PENTASA [Concomitant]
     Indication: COLITIS ULCERATIVE
     Dosage: FOR ONE YEAR AND A HALF
     Route: 065
     Dates: start: 2010
  12. AZATHIOPRINE [Concomitant]
     Indication: PROPHYLAXIS
     Route: 065
     Dates: start: 201111
  13. OMEPRAZOLE [Concomitant]
     Dosage: FOR 3 YEARS
     Route: 065
     Dates: start: 2009

REACTIONS (8)
  - Hepatic cirrhosis [Not Recovered/Not Resolved]
  - Dyspnoea [Not Recovered/Not Resolved]
  - Asthenia [Not Recovered/Not Resolved]
  - Dyskinesia [Not Recovered/Not Resolved]
  - Weight increased [Not Recovered/Not Resolved]
  - Diarrhoea [Not Recovered/Not Resolved]
  - Blood glucose fluctuation [Not Recovered/Not Resolved]
  - Insomnia [Not Recovered/Not Resolved]
